FAERS Safety Report 11847677 (Version 2)
Quarter: 2016Q1

REPORT INFORMATION
  Report Type: Report from Study
  Country: RU (occurrence: RU)
  Receive Date: 20151217
  Receipt Date: 20160318
  Transmission Date: 20160526
  Serious: Yes (Hospitalization)
  Sender: FDA-Public Use
  Company Number: RU-ASTRAZENECA-2015SF19454

PATIENT
  Age: 18584 Day
  Sex: Female

DRUGS (6)
  1. FLUCONAZOLE. [Concomitant]
     Active Substance: FLUCONAZOLE
     Indication: ENDOMETRIAL HYPERPLASIA
     Route: 048
     Dates: start: 20150820, end: 20150820
  2. OMEPRAZOLE. [Suspect]
     Active Substance: OMEPRAZOLE
     Route: 048
  3. DOXYCYCLINE. [Concomitant]
     Active Substance: DOXYCYCLINE
     Indication: ENDOMETRIAL HYPERPLASIA
     Route: 048
     Dates: start: 20150820, end: 20150824
  4. METRONIDAZOLE. [Concomitant]
     Active Substance: METRONIDAZOLE
     Indication: ENDOMETRIAL HYPERPLASIA
     Route: 048
     Dates: start: 20150820, end: 20150824
  5. OXYTOCIN. [Concomitant]
     Active Substance: OXYTOCIN
     Indication: ENDOMETRIAL HYPERPLASIA
     Route: 030
     Dates: start: 20150820, end: 20150824
  6. SYMBICORT [Suspect]
     Active Substance: BUDESONIDE\FORMOTEROL FUMARATE DIHYDRATE
     Indication: ASTHMA
     Route: 055
     Dates: start: 20150731

REACTIONS (2)
  - Pancreatitis chronic [Recovered/Resolved]
  - Chronic gastritis [Recovered/Resolved]

NARRATIVE: CASE EVENT DATE: 20150826
